FAERS Safety Report 20795820 (Version 7)
Quarter: 2025Q2

REPORT INFORMATION
  Report Type: Report from Study
  Country: CO (occurrence: CO)
  Receive Date: 20220506
  Receipt Date: 20250513
  Transmission Date: 20250716
  Serious: Yes (Life-Threatening, Hospitalization, Other)
  Sender: NOVARTIS
  Company Number: CO-NOVARTISPH-NVSC2022CO102066

PATIENT
  Sex: Male
  Weight: 101 kg

DRUGS (9)
  1. TASIGNA [Suspect]
     Active Substance: NILOTINIB
     Indication: Chronic myeloid leukaemia
     Dosage: 300 MG, Q12H
     Route: 048
     Dates: start: 20210310
  2. TASIGNA [Suspect]
     Active Substance: NILOTINIB
     Dosage: 2 DOSAGE FORM, Q12H (300 MG, (2 DOSE OF 150 MG)
     Route: 048
  3. VALSARTAN [Suspect]
     Active Substance: VALSARTAN
     Indication: Product used for unknown indication
     Dosage: UNK, QD (START SINCE 2 MONTHS AGO)
     Route: 048
  4. VALSARTAN [Suspect]
     Active Substance: VALSARTAN
     Dosage: 1 DOSAGE FORM, QD (1 OF 160 MG)
     Route: 048
  5. PANTOPRAZOLE [Suspect]
     Active Substance: PANTOPRAZOLE
     Indication: Product used for unknown indication
     Dosage: 1 DOSAGE FORM, QD (1 OF 40 MG)
     Route: 048
  6. DAPAGLIFLOZIN [Concomitant]
     Active Substance: DAPAGLIFLOZIN
     Indication: Product used for unknown indication
     Dosage: 1 DOSAGE FORM, QD (1 OF 10 MG))
     Route: 065
  7. Hidroten [Concomitant]
     Indication: Product used for unknown indication
     Dosage: 1 DOSAGE FORM, QD
     Route: 048
  8. DUTASTERIDE\TAMSULOSIN [Concomitant]
     Active Substance: DUTASTERIDE\TAMSULOSIN
     Indication: Product used for unknown indication
     Dosage: 1 DOSAGE FORM, QD (1 OF 0.5 MG)
     Route: 048
  9. Rosuvina [Concomitant]
     Indication: Product used for unknown indication
     Dosage: 1 DOSAGE FORM, QD (1 OF 10  MG)
     Route: 048

REACTIONS (12)
  - Near death experience [Unknown]
  - Illness [Unknown]
  - Ill-defined disorder [Unknown]
  - Abdominal distension [Unknown]
  - Pancreatitis [Not Recovered/Not Resolved]
  - Blood creatinine increased [Not Recovered/Not Resolved]
  - Kidney infection [Not Recovered/Not Resolved]
  - Nephropathy toxic [Unknown]
  - Blood glucose increased [Unknown]
  - Influenza [Recovered/Resolved]
  - Nasal congestion [Recovered/Resolved]
  - Pain [Recovered/Resolved]
